FAERS Safety Report 5457214-1 (Version None)
Quarter: 2007Q3

REPORT INFORMATION
  Report Type: 
  Country: None (occurrence: None)
  Receive Date: 20070918
  Receipt Date: 20070116
  Transmission Date: 20080115
  Serious: No
  Sender: FDA-Public Use
  Company Number: US-ASTRAZENECA-2007UW00875

PATIENT
  Sex: Female

DRUGS (9)
  1. SEROQUEL [Suspect]
     Route: 048
     Dates: start: 20060101
  2. ARIMIDEX [Concomitant]
     Dates: end: 20061201
  3. MOTRIN [Concomitant]
  4. ZICAM COLD [Concomitant]
  5. TYLENOL (CAPLET) [Concomitant]
  6. LITHIUM CARBONATE [Concomitant]
  7. GLYBURIDE [Concomitant]
  8. ZANTAC 150 [Concomitant]
  9. XANAX [Concomitant]

REACTIONS (8)
  - ASTHENIA [None]
  - BONE PAIN [None]
  - HEADACHE [None]
  - MALAISE [None]
  - MEMORY IMPAIRMENT [None]
  - NASAL CONGESTION [None]
  - PAIN [None]
  - SINUS CONGESTION [None]
